FAERS Safety Report 8139117-7 (Version None)
Quarter: 2012Q1

REPORT INFORMATION
  Report Type: 
  Country: None (occurrence: None)
  Receive Date: 20120215
  Receipt Date: 20120213
  Transmission Date: 20120608
  Serious: Yes (Hospitalization, Disabling, Other)
  Sender: FDA-Public Use
  Company Number: US-MERCK-1104USA03722

PATIENT
  Age: 49 Year
  Sex: Female
  Weight: 70 kg

DRUGS (14)
  1. HUMIRA [Concomitant]
     Indication: RHEUMATOID ARTHRITIS
     Route: 065
     Dates: start: 20090101, end: 20110101
  2. FOSAMAX [Suspect]
     Indication: OSTEOPOROSIS
     Route: 048
     Dates: start: 20021217, end: 20080801
  3. FOSAMAX [Suspect]
     Route: 048
     Dates: start: 20030812, end: 20070901
  4. [THERAPY UNSPECIFIED] [Concomitant]
     Indication: RHEUMATOID ARTHRITIS
     Route: 065
     Dates: start: 19930101
  5. FOSAMAX [Suspect]
     Route: 048
     Dates: start: 20030812, end: 20070901
  6. FOSAMAX PLUS D [Suspect]
     Indication: OSTEOPOROSIS
     Route: 048
     Dates: start: 20061025, end: 20080801
  7. FOSAMAX [Suspect]
     Indication: OSTEOPOROSIS PROPHYLAXIS
     Route: 048
     Dates: start: 20021217, end: 20080801
  8. PLAQUENIL [Concomitant]
     Indication: RHEUMATOID ARTHRITIS
     Route: 065
     Dates: start: 19990101
  9. SYNTHROID [Concomitant]
     Indication: HYPOTHYROIDISM
     Route: 065
     Dates: start: 19930101
  10. FOSAMAX [Suspect]
     Route: 048
     Dates: start: 20030114, end: 20080826
  11. FOSAMAX [Suspect]
     Route: 048
     Dates: start: 20030114, end: 20080826
  12. FOSAMAX [Suspect]
     Route: 048
     Dates: start: 20030114, end: 20080826
  13. FOSAMAX [Suspect]
     Route: 048
     Dates: start: 20030114, end: 20080826
  14. FELDENE [Concomitant]
     Indication: RHEUMATOID ARTHRITIS
     Route: 065
     Dates: start: 20090101

REACTIONS (28)
  - ANXIETY [None]
  - FEMUR FRACTURE [None]
  - RESTLESS LEGS SYNDROME [None]
  - HYPERTENSION [None]
  - FRACTURE DELAYED UNION [None]
  - GAIT DISTURBANCE [None]
  - FOOT FRACTURE [None]
  - HAEMORRHOIDS [None]
  - OSTEOARTHRITIS [None]
  - BLOOD CREATININE INCREASED [None]
  - MENORRHAGIA [None]
  - HYPOTHYROIDISM [None]
  - OSTEOSCLEROSIS [None]
  - TOOTHACHE [None]
  - ANKLE FRACTURE [None]
  - PAIN IN EXTREMITY [None]
  - VAGINITIS BACTERIAL [None]
  - TINNITUS [None]
  - RIB FRACTURE [None]
  - BLOOD UREA INCREASED [None]
  - FALL [None]
  - BONE LOSS [None]
  - UTERINE PROLAPSE [None]
  - DYSPEPSIA [None]
  - DYSMENORRHOEA [None]
  - DEPRESSION [None]
  - FRACTURE NONUNION [None]
  - DYSPNOEA [None]
